FAERS Safety Report 7774387-6 (Version None)
Quarter: 2011Q3

REPORT INFORMATION
  Report Type: 
  Country: None (occurrence: None)
  Receive Date: 20110923
  Receipt Date: 20110912
  Transmission Date: 20111222
  Serious: Yes (Death, Hospitalization)
  Sender: FDA-Public Use
  Company Number: DE-CELGENEUS-062-C5013-09010270

PATIENT
  Age: 68 Year
  Sex: Male
  Weight: 75.6 kg

DRUGS (15)
  1. LENALIDOMIDE [Suspect]
     Route: 048
     Dates: end: 20090105
  2. ASPIRIN [Concomitant]
     Indication: THROMBOSIS PROPHYLAXIS
     Route: 065
     Dates: start: 20071022, end: 20090224
  3. METFORMIN HCL [Concomitant]
     Route: 065
  4. MELPHALAN HYDROCHLORIDE [Suspect]
     Route: 065
     Dates: end: 20080701
  5. PREDNISONE [Suspect]
     Indication: MULTIPLE MYELOMA
     Route: 065
     Dates: start: 20071022, end: 20080605
  6. PREDNISONE [Suspect]
     Route: 065
     Dates: end: 20080701
  7. MOVIPREP [Concomitant]
     Indication: CONSTIPATION
     Route: 048
     Dates: end: 20090224
  8. LENALIDOMIDE [Suspect]
     Indication: MULTIPLE MYELOMA
     Route: 048
     Dates: start: 20071022
  9. MELPHALAN HYDROCHLORIDE [Suspect]
     Indication: MULTIPLE MYELOMA
     Route: 065
     Dates: start: 20071022, end: 20080605
  10. INTRATECT [Concomitant]
     Indication: INFECTION PROPHYLAXIS
     Route: 065
     Dates: start: 20080211, end: 20090224
  11. LENALIDOMIDE [Suspect]
     Indication: MULTIPLE MYELOMA
     Route: 048
     Dates: start: 20081208, end: 20090104
  12. GLYBURIDE [Concomitant]
     Indication: DIABETES MELLITUS
     Route: 048
     Dates: end: 20090227
  13. DEXAMETHASONE [Concomitant]
     Indication: MULTIPLE MYELOMA
     Route: 065
     Dates: start: 20081208, end: 20090224
  14. HYDROMORPHONE HCL [Interacting]
     Indication: PAIN
     Route: 048
     Dates: end: 20090224
  15. IBUPROFEN TABLETS [Concomitant]
     Route: 065

REACTIONS (4)
  - CIRCULATORY COLLAPSE [None]
  - BRAIN OEDEMA [None]
  - MENINGITIS [None]
  - SEPSIS [None]
